FAERS Safety Report 4758737-0 (Version None)
Quarter: 2005Q3

REPORT INFORMATION
  Report Type: 
  Country: None (occurrence: None)
  Receive Date: 20050901
  Receipt Date: 20050823
  Transmission Date: 20060218
  Serious: Yes (Life-Threatening, Hospitalization)
  Sender: FDA-Public Use
  Company Number: DE-ABBOTT-05P-062-0309302-00

PATIENT
  Sex: Male

DRUGS (12)
  1. KALETRA [Suspect]
     Indication: HIV INFECTION
     Route: 048
     Dates: start: 20041111
  2. LAMIVUDINE + ZIDOVUDINE [Concomitant]
     Indication: HIV INFECTION
     Route: 048
     Dates: start: 20041111
  3. AMPHOTERICIN B [Concomitant]
     Indication: CANDIDIASIS
     Route: 048
     Dates: start: 20050305, end: 20050307
  4. COTRIM DS [Concomitant]
     Indication: INFECTION PROPHYLAXIS
     Route: 048
     Dates: start: 20041002
  5. ASCORBIC ACID [Concomitant]
     Indication: VITAMIN SUPPLEMENTATION
     Route: 048
  6. AMOROLFINE [Concomitant]
     Indication: ONYCHOMYCOSIS
     Dosage: NOT REPORTED
     Route: 061
  7. ASS RATIO 500 [Concomitant]
     Indication: TOOTHACHE
     Dosage: NOT REPORTED
     Route: 048
     Dates: start: 20041231, end: 20050103
  8. FACTU SALBE [Concomitant]
     Indication: CONDYLOMA ACUMINATUM
     Dosage: NOT REPORTED
     Route: 061
     Dates: start: 20050125, end: 20050207
  9. FACTU SALBE [Concomitant]
     Indication: HAEMORRHOIDS
     Dosage: NOT REPORTED
     Route: 061
     Dates: start: 20050317, end: 20050327
  10. ACYCLOVIR [Concomitant]
     Indication: HERPES SIMPLEX
     Dosage: NOT REPORTED
     Route: 061
     Dates: start: 20050408, end: 20050410
  11. ACETAMINOPHEN [Concomitant]
     Indication: DRUG USE FOR UNKNOWN INDICATION
     Dosage: NOT REPORTED
     Route: 048
     Dates: start: 20050305, end: 20050327
  12. OINTMENT WITH TRIAMCINOLON AND NYSTATIN [Concomitant]
     Indication: DERMATITIS
     Dosage: NOT REPORTED
     Route: 061
     Dates: start: 20050721

REACTIONS (3)
  - BOWEN'S DISEASE [None]
  - DIARRHOEA [None]
  - SQUAMOUS CELL CARCINOMA [None]
